FAERS Safety Report 11202223 (Version 3)
Quarter: 2015Q3

REPORT INFORMATION
  Report Type: Spontaneous
  Country: JP (occurrence: JP)
  Receive Date: 20150619
  Receipt Date: 20150727
  Transmission Date: 20151125
  Serious: Yes (Hospitalization)
  Sender: FDA-Public Use
  Company Number: JP-ELI_LILLY_AND_COMPANY-JP201506005956

PATIENT
  Age: 72 Year
  Sex: Male
  Weight: 42 kg

DRUGS (13)
  1. TRAMCET [Concomitant]
     Active Substance: ACETAMINOPHEN\TRAMADOL
     Indication: PAIN
     Dosage: UNK
     Route: 048
  2. URIEF [Concomitant]
     Active Substance: SILODOSIN
     Indication: URINARY RETENTION
     Dosage: UNK
     Dates: start: 20150322
  3. ETIZOLAM [Concomitant]
     Active Substance: ETIZOLAM
     Indication: PAIN
     Dosage: UNK
     Route: 048
  4. MICARDIS [Concomitant]
     Active Substance: TELMISARTAN
     Indication: HYPERTENSION
     Dosage: UNK
  5. KREMEZIN [Concomitant]
     Active Substance: ACTIVATED CHARCOAL
     Indication: RENAL FAILURE
  6. ATENOLOL. [Concomitant]
     Active Substance: ATENOLOL
     Indication: HYPERTENSION
     Dosage: UNK
  7. MAGNESIUM OXIDE. [Concomitant]
     Active Substance: MAGNESIUM OXIDE
     Indication: CONSTIPATION
     Dosage: 660 MG, TID
  8. PAXIL [Concomitant]
     Active Substance: PAROXETINE HYDROCHLORIDE
     Indication: PAIN
     Dosage: UNK
     Route: 048
  9. AMLODIPINE [Concomitant]
     Active Substance: AMLODIPINE BESYLATE
     Indication: HYPERTENSION
     Dosage: UNK
  10. ZALUTIA [Suspect]
     Active Substance: TADALAFIL
     Indication: URINARY RETENTION
     Dosage: 5 MG, QD
     Route: 048
     Dates: start: 20150606, end: 20150619
  11. LANSOPRAZOLE. [Concomitant]
     Active Substance: LANSOPRAZOLE
     Indication: GASTROOESOPHAGEAL REFLUX DISEASE
  12. CERNILTON                          /00521401/ [Concomitant]
     Indication: URINARY RETENTION
     Dosage: UNK
     Dates: start: 20150322
  13. EFUMIN [Concomitant]
     Indication: URINARY RETENTION
     Dosage: UNK
     Dates: start: 20150322

REACTIONS (3)
  - Faecaloma [Recovered/Resolved]
  - Ileus [Recovered/Resolved]
  - Enterocolitis [Recovered/Resolved]

NARRATIVE: CASE EVENT DATE: 20150609
